FAERS Safety Report 21489521 (Version 1)
Quarter: 2022Q4

REPORT INFORMATION
  Report Type: Spontaneous
  Country: US (occurrence: US)
  Receive Date: 20221021
  Receipt Date: 20221021
  Transmission Date: 20230113
  Serious: No
  Sender: FDA-Public Use
  Company Number: US-CELLTRION INC.-2022US004345

PATIENT

DRUGS (3)
  1. INFLECTRA [Suspect]
     Active Substance: INFLIXIMAB-DYYB
     Indication: Colitis ulcerative
     Dosage: 736 MG, EVERY 4 WEEKS (DIRECTIONS: INJECT 736 MG OF INFLECTRA, FREQUENCY EVERY 4 WEEKS QUANTITY 7 RE
     Route: 065
  2. INFLECTRA [Suspect]
     Active Substance: INFLIXIMAB-DYYB
     Dosage: 74 MLS IN THE VEIN EVERY 28 DAYS
  3. INFLECTRA [Suspect]
     Active Substance: INFLIXIMAB-DYYB
     Dosage: 10MG/KG Q 4 WEEKS

REACTIONS (3)
  - Off label use [Unknown]
  - Product dose omission issue [Unknown]
  - Overdose [Unknown]
